FAERS Safety Report 25596024 (Version 1)
Quarter: 2025Q3

REPORT INFORMATION
  Report Type: Spontaneous
  Country: US (occurrence: None)
  Receive Date: 20250722
  Receipt Date: 20250722
  Transmission Date: 20251020
  Serious: Yes (Death)
  Sender: FDA-CTU
  Company Number: None

PATIENT
  Age: 85 Year
  Sex: Female
  Weight: 65.3 kg

DRUGS (27)
  1. PROLIA [Suspect]
     Active Substance: DENOSUMAB
     Indication: Osteoporosis
     Route: 058
     Dates: start: 20241121
  2. CALCIUM [Concomitant]
     Active Substance: CALCIUM
  3. VITAMIN D NOS [Concomitant]
     Active Substance: CHOLECALCIFEROL\ERGOCALCIFEROL
  4. ACETAMINOPHEN [Concomitant]
     Active Substance: ACETAMINOPHEN
  5. VITAMIN C [Concomitant]
     Active Substance: ASCORBIC ACID
  6. ELIQUIS [Concomitant]
     Active Substance: APIXABAN
  7. FUROSEMIDE [Concomitant]
     Active Substance: FUROSEMIDE
  8. HYDROXYCHLOROQUINE [Concomitant]
     Active Substance: HYDROXYCHLOROQUINE
  9. DIPHEN/ATROPIR [Concomitant]
  10. LEFLUNOMIDE [Concomitant]
     Active Substance: LEFLUNOMIDE
  11. LEVOTHYROXINE [Concomitant]
     Active Substance: LEVOTHYROXINE
  12. LIDOCAINE [Concomitant]
     Active Substance: LIDOCAINE
  13. MAGNESIUM [Concomitant]
     Active Substance: MAGNESIUM
  14. METOPROLOL [Concomitant]
     Active Substance: METOPROLOL
  15. MIRTAZAPINE [Concomitant]
     Active Substance: MIRTAZAPINE
  16. NAPROXEN [Concomitant]
     Active Substance: NAPROXEN
  17. NITROGLYCERIN [Concomitant]
     Active Substance: NITROGLYCERIN
  18. OMEPRAZOLE [Concomitant]
     Active Substance: OMEPRAZOLE
  19. POTASIIUM CHLORIDE [Concomitant]
  20. PREGABALIN [Concomitant]
     Active Substance: PREGABALIN
  21. PROCHLOPERAZINE [Concomitant]
  22. SUCRALFATE [Concomitant]
     Active Substance: SUCRALFATE
  23. TORSEMIDE [Concomitant]
     Active Substance: TORSEMIDE
  24. TRAMADOL [Concomitant]
     Active Substance: TRAMADOL
  25. TYMLOS [Concomitant]
     Active Substance: ABALOPARATIDE
  26. VIBERZI [Concomitant]
     Active Substance: ELUXADOLINE
  27. CYCLOBENZAPRINE [Concomitant]
     Active Substance: CYCLOBENZAPRINE

REACTIONS (1)
  - Death [None]

NARRATIVE: CASE EVENT DATE: 20250701
